FAERS Safety Report 16690045 (Version 1)
Quarter: 2019Q3

REPORT INFORMATION
  Report Type: Spontaneous
  Country: US (occurrence: US)
  Receive Date: 20190809
  Receipt Date: 20190809
  Transmission Date: 20191004
  Serious: No
  Sender: FDA-Public Use
  Company Number: US-PERRIGO-18US008520

PATIENT

DRUGS (6)
  1. IBUPROFEN. [Suspect]
     Active Substance: IBUPROFEN
     Indication: HEADACHE
     Dosage: UNKNOWN, UNKNOWN
     Route: 048
     Dates: start: 201808
  2. IBUPROFEN. [Suspect]
     Active Substance: IBUPROFEN
     Indication: PAIN
  3. IBUPROFEN. [Suspect]
     Active Substance: IBUPROFEN
     Indication: MALAISE
  4. IBUPROFEN. [Suspect]
     Active Substance: IBUPROFEN
     Indication: INFLAMMATION
  5. IBUPROFEN. [Suspect]
     Active Substance: IBUPROFEN
     Indication: BACK PAIN
  6. IBUPROFEN. [Suspect]
     Active Substance: IBUPROFEN
     Indication: TOOTHACHE

REACTIONS (1)
  - Therapeutic response unexpected [Unknown]

NARRATIVE: CASE EVENT DATE: 201808
